FAERS Safety Report 6822126-5 (Version None)
Quarter: 2010Q3

REPORT INFORMATION
  Report Type: 
  Country: None (occurrence: None)
  Receive Date: 20100708
  Receipt Date: 20100701
  Transmission Date: 20110219
  Serious: Yes (Hospitalization)
  Sender: FDA-Public Use
  Company Number: GB-WYE-G06349210

PATIENT
  Age: 75 Year

DRUGS (1)
  1. ZOTON [Suspect]
     Dosage: 60MG FREQUENCY UNKNOWN
     Dates: start: 20100601

REACTIONS (2)
  - CHOLECYSTITIS [None]
  - CHOLESTASIS [None]
